FAERS Safety Report 7424475-9 (Version None)
Quarter: 2011Q2

REPORT INFORMATION
  Report Type: 
  Country: None (occurrence: None)
  Receive Date: 20110411
  Receipt Date: 20110405
  Transmission Date: 20111010
  Serious: Yes (Life-Threatening, Hospitalization, Other)
  Sender: FDA-Public Use
  Company Number: 2011SP014941

PATIENT
  Sex: Male

DRUGS (2)
  1. HEPARIN [Concomitant]
  2. INTEGRILIN [Suspect]
     Indication: MYOCARDIAL INFARCTION
     Dosage: 180 MCG, IV
     Route: 042

REACTIONS (2)
  - ACUTE CORONARY SYNDROME [None]
  - PLATELET COUNT DECREASED [None]
